FAERS Safety Report 10516265 (Version 2)
Quarter: 2014Q4

REPORT INFORMATION
  Report Type: Spontaneous
  Country: US (occurrence: US)
  Receive Date: 20141014
  Receipt Date: 20141030
  Transmission Date: 20150528
  Serious: No
  Sender: FDA-Public Use
  Company Number: US-PFIZER INC-2014278157

PATIENT
  Sex: Female

DRUGS (2)
  1. ASPARTAME [Suspect]
     Active Substance: ASPARTAME
     Dosage: UNK
     Route: 048
  2. ALAVERT ALLERGY [Suspect]
     Active Substance: LORATADINE
     Indication: HYPERSENSITIVITY
     Dosage: 1 ORODISPERSIBLE TABLET, ONCE
     Route: 048

REACTIONS (4)
  - Reaction to drug excipients [Unknown]
  - Product formulation issue [Unknown]
  - Nausea [Recovered/Resolved]
  - Feeling abnormal [Unknown]
